FAERS Safety Report 10562272 (Version 1)
Quarter: 2014Q4

REPORT INFORMATION
  Report Type: Spontaneous
  Country: ES (occurrence: None)
  Receive Date: 20141031
  Receipt Date: 20141031
  Transmission Date: 20150529
  Serious: Yes (Other)
  Sender: FDA-Public Use
  Company Number: FK201404493

PATIENT
  Age: 78 Year
  Sex: Female

DRUGS (11)
  1. OMEPRAZOLE. [Concomitant]
     Active Substance: OMEPRAZOLE
  2. TOPIRAMATE. [Concomitant]
     Active Substance: TOPIRAMATE
  3. ALLOPURINOL. [Concomitant]
     Active Substance: ALLOPURINOL
  4. ACENOCOUMAROL [Concomitant]
     Active Substance: ACENOCOUMAROL
  5. HYDRALAZINE [Concomitant]
     Active Substance: HYDRALAZINE HYDROCHLORIDE
  6. AMIODARONE HCL [Suspect]
     Active Substance: AMIODARONE HYDROCHLORIDE
     Indication: VENTRICULAR TACHYCARDIA
     Dosage: (NOT OTHERWISE SPECIFIED)
     Route: 042
  7. NITROGLYCERINE (GLYCERYL TRINITRATE) [Concomitant]
  8. GLICLAZIDE [Concomitant]
     Active Substance: GLICLAZIDE
  9. ASPIRIN (ACETYLSALICYLIC ACID) [Concomitant]
     Active Substance: ASPIRIN
  10. SIMVASTATIN. [Concomitant]
     Active Substance: SIMVASTATIN
  11. FUROSEMIDE. [Concomitant]
     Active Substance: FUROSEMIDE

REACTIONS (9)
  - Mitral valve incompetence [None]
  - Electrocardiogram QT prolonged [None]
  - Dyspnoea [None]
  - Ventricular extrasystoles [None]
  - Ventricular tachycardia [None]
  - Torsade de pointes [None]
  - Orthopnoea [None]
  - Drug interaction [None]
  - Atrial fibrillation [None]
